FAERS Safety Report 5739462-6 (Version None)
Quarter: 2008Q2

REPORT INFORMATION
  Report Type: 
  Country: None (occurrence: None)
  Receive Date: 20080515
  Receipt Date: 20080506
  Transmission Date: 20081010
  Serious: Yes (Other)
  Sender: FDA-Public Use
  Company Number: FR-PFIZER INC-2008039644

PATIENT
  Sex: Female

DRUGS (4)
  1. FARMORUBICIN [Suspect]
     Indication: BREAST CANCER METASTATIC
  2. ENDOXAN [Concomitant]
  3. FLUOROURACIL [Concomitant]
  4. ACETAMINOPHEN [Concomitant]

REACTIONS (1)
  - TRANSAMINASES INCREASED [None]
